FAERS Safety Report 10943627 (Version 4)
Quarter: 2015Q3

REPORT INFORMATION
  Report Type: Spontaneous
  Country: US (occurrence: US)
  Receive Date: 20150322
  Receipt Date: 20150902
  Transmission Date: 20151125
  Serious: No
  Sender: FDA-Public Use
  Company Number: US-JNJFOC-20150116006

PATIENT
  Sex: Male

DRUGS (3)
  1. RISPERIDONE. [Suspect]
     Active Substance: RISPERIDONE
     Indication: SCHIZOPHRENIA, PARANOID TYPE
     Route: 048
  2. RISPERDAL [Suspect]
     Active Substance: RISPERIDONE
     Indication: SCHIZOPHRENIA, PARANOID TYPE
     Route: 048
  3. RISPERIDONE. [Suspect]
     Active Substance: RISPERIDONE
     Indication: SCHIZOPHRENIA, PARANOID TYPE
     Route: 048
     Dates: start: 2008, end: 2014

REACTIONS (4)
  - Weight increased [Unknown]
  - Hyperlipidaemia [Unknown]
  - Emotional distress [Unknown]
  - Gynaecomastia [Unknown]
